FAERS Safety Report 13341775 (Version 1)
Quarter: 2017Q1

REPORT INFORMATION
  Report Type: Spontaneous
  Country: JP (occurrence: JP)
  Receive Date: 20170316
  Receipt Date: 20170316
  Transmission Date: 20170428
  Serious: Yes (Disabling, Other)
  Sender: FDA-Public Use
  Company Number: JP-BRISTOL-MYERS SQUIBB COMPANY-BMS-2017-017749

PATIENT
  Age: 86 Year
  Sex: Male

DRUGS (5)
  1. OPDIVO [Suspect]
     Active Substance: NIVOLUMAB
     Indication: PRODUCT USED FOR UNKNOWN INDICATION
     Dosage: UNK
     Route: 065
     Dates: start: 20170127, end: 20170127
  2. OPDIVO [Suspect]
     Active Substance: NIVOLUMAB
     Indication: NON-SMALL CELL LUNG CANCER
     Dosage: UNK
     Route: 041
     Dates: start: 20161206, end: 20161206
  3. OPDIVO [Suspect]
     Active Substance: NIVOLUMAB
     Indication: PRODUCT USED FOR UNKNOWN INDICATION
     Dosage: UNK
     Route: 041
  4. ELASPOL [Suspect]
     Active Substance: SIVELESTAT SODIUM
     Indication: LUNG DISORDER
     Dosage: 300 MG, UNK
     Route: 041
  5. OPDIVO [Suspect]
     Active Substance: NIVOLUMAB
     Indication: PRODUCT USED FOR UNKNOWN INDICATION
     Dosage: UNK
     Route: 065
     Dates: end: 200702

REACTIONS (10)
  - Interstitial lung disease [Not Recovered/Not Resolved]
  - Infection [Unknown]
  - Blood potassium increased [Unknown]
  - Nausea [Unknown]
  - Renal impairment [Unknown]
  - Pneumocystis jirovecii pneumonia [Unknown]
  - Vomiting [Unknown]
  - Alveolitis allergic [Unknown]
  - Pyrexia [Unknown]
  - Aspiration [Unknown]

NARRATIVE: CASE EVENT DATE: 201702
